FAERS Safety Report 15945420 (Version 8)
Quarter: 2021Q2

REPORT INFORMATION
  Report Type: Spontaneous
  Country: US (occurrence: US)
  Receive Date: 20190211
  Receipt Date: 20210625
  Transmission Date: 20210716
  Serious: No
  Sender: FDA-Public Use
  Company Number: US-SA-2019SA036982

PATIENT
  Age: 51 Year
  Sex: Female

DRUGS (3)
  1. DUPIXENT [Suspect]
     Active Substance: DUPILUMAB
     Indication: ASTHMA
     Dosage: 600 MG, 1X
     Route: 058
     Dates: start: 201812, end: 201812
  2. DUPIXENT [Suspect]
     Active Substance: DUPILUMAB
     Dosage: 300 MG, QOW
     Route: 058
     Dates: start: 201812
  3. DUPIXENT [Suspect]
     Active Substance: DUPILUMAB
     Dosage: 300 MG, QOW
     Route: 058
     Dates: start: 202104

REACTIONS (12)
  - Photosensitivity reaction [Unknown]
  - Musculoskeletal stiffness [Unknown]
  - Pruritus [Unknown]
  - Hepatic function abnormal [Unknown]
  - Injection site swelling [Unknown]
  - Sunburn [Unknown]
  - Illness [Unknown]
  - Fluid retention [Unknown]
  - Pain [Unknown]
  - Injection site pain [Unknown]
  - Product use issue [Unknown]
  - Painful respiration [Unknown]

NARRATIVE: CASE EVENT DATE: 201812
